FAERS Safety Report 8304082-6 (Version None)
Quarter: 2012Q2

REPORT INFORMATION
  Report Type: 
  Country: None (occurrence: None)
  Receive Date: 20120418
  Receipt Date: 20111107
  Transmission Date: 20120825
  Serious: No
  Sender: FDA-Public Use
  Company Number: AEUSA201100308

PATIENT
  Age: 35 Year
  Sex: Female

DRUGS (1)
  1. PROLASTIN-C [Suspect]
     Indication: PRODUCT USED FOR UNKNOWN INDICATION
     Dosage: UNKNOWN;1X;UNKNOWN
     Dates: start: 20111107, end: 20111107

REACTIONS (2)
  - MEDICATION ERROR [None]
  - INJURY ASSOCIATED WITH DEVICE [None]
